FAERS Safety Report 4535035-1 (Version None)
Quarter: 2004Q4

REPORT INFORMATION
  Report Type: 
  Country: None (occurrence: None)
  Receive Date: 20041214
  Receipt Date: 20041104
  Transmission Date: 20050328
  Serious: Yes (Other)
  Sender: FDA-Public Use
  Company Number: 2004090163

PATIENT
  Age: 60 Year
  Sex: Female
  Weight: 83.9154 kg

DRUGS (8)
  1. BEXTRA [Suspect]
     Indication: ARTHRITIS
     Dosage: 20 MG (20 MG, 1 IN 1 D), ORAL
     Route: 048
     Dates: start: 20040101
  2. ALLOPURINOL [Concomitant]
  3. OLMESARTAN MEDOXOMIL (OLMESARTAN MEDOXOMIL) [Concomitant]
  4. POTASSIUM CHLORIDE [Concomitant]
  5. MAGNESIUM OXIDE (MAGNESIUM OXDIE) [Concomitant]
  6. PRAVASTATIN SODIUM [Concomitant]
  7. VENLAFAXINE HCL [Concomitant]
  8. ALPRAZOLAM [Concomitant]

REACTIONS (1)
  - HAEMATOCHEZIA [None]
